FAERS Safety Report 4700314-1 (Version None)
Quarter: 2005Q2

REPORT INFORMATION
  Report Type: 
  Country: None (occurrence: None)
  Receive Date: 20050209
  Receipt Date: 20050209
  Transmission Date: 20051028
  Serious: No
  Sender: FDA-Public Use
  Company Number: None

PATIENT
  Age: 27 Year
  Sex: Female
  Weight: 81.1939 kg

DRUGS (2)
  1. WELLBUTRIN SR [Suspect]
     Dosage: 100 MG BID
  2. CELEBREX [Suspect]
     Dosage: 200 MG BID

REACTIONS (3)
  - MOOD SWINGS [None]
  - STOMACH DISCOMFORT [None]
  - THERAPEUTIC RESPONSE UNEXPECTED WITH DRUG SUBSTITUTION [None]
